FAERS Safety Report 24156451 (Version 1)
Quarter: 2024Q3

REPORT INFORMATION
  Report Type: Spontaneous
  Country: GB (occurrence: GB)
  Receive Date: 20240731
  Receipt Date: 20240731
  Transmission Date: 20241016
  Serious: Yes (Life-Threatening, Other)
  Sender: PFIZER
  Company Number: None

PATIENT
  Age: 43 Year
  Sex: Female

DRUGS (2)
  1. METHYLPREDNISOLONE SODIUM SUCCINATE [Suspect]
     Active Substance: METHYLPREDNISOLONE SODIUM SUCCINATE
     Indication: Adverse drug reaction
     Dosage: 40 MG
     Dates: start: 20240727, end: 20240727
  2. BUPIVACAINE [Concomitant]
     Active Substance: BUPIVACAINE
     Indication: Musculoskeletal chest pain
     Dosage: UNK
     Dates: start: 20240727, end: 20240727

REACTIONS (1)
  - Anaphylactic reaction [Recovered/Resolved]

NARRATIVE: CASE EVENT DATE: 20240727
